FAERS Safety Report 10094058 (Version 2)
Quarter: 2014Q2

REPORT INFORMATION
  Report Type: Spontaneous
  Country: JP (occurrence: JP)
  Receive Date: 20140422
  Receipt Date: 20140509
  Transmission Date: 20141212
  Serious: Yes (Other)
  Sender: FDA-Public Use
  Company Number: JP-PFIZER INC-2014108200

PATIENT
  Age: 91 Year
  Sex: Female

DRUGS (4)
  1. ALDACTONE A [Suspect]
     Indication: CARDIAC FAILURE
     Route: 048
  2. ARTIST [Concomitant]
     Route: 048
  3. TORASEMIDE [Concomitant]
     Route: 048
  4. LASIX [Concomitant]

REACTIONS (1)
  - Renal impairment [Recovered/Resolved]
